FAERS Safety Report 4960113-2 (Version None)
Quarter: 2006Q1

REPORT INFORMATION
  Report Type: 
  Country: None (occurrence: None)
  Receive Date: 20060328
  Receipt Date: 20060313
  Transmission Date: 20060701
  Serious: Yes (Death)
  Sender: FDA-Public Use
  Company Number: 039

PATIENT
  Sex: Female
  Weight: 102.0593 kg

DRUGS (13)
  1. FAZACLO ODT [Suspect]
     Indication: BIPOLAR DISORDER
     Dosage: 25 MG TID PO
     Route: 048
     Dates: start: 20060222, end: 20060306
  2. FAZACLO ODT [Suspect]
     Indication: SCHIZOPHRENIA
     Dosage: 25 MG TID PO
     Route: 048
     Dates: start: 20060222, end: 20060306
  3. ABILIFY [Concomitant]
  4. DEPAKOTE [Concomitant]
  5. HALDOL [Concomitant]
  6. ATIVAN [Concomitant]
  7. COGENTIN [Concomitant]
  8. NORVASC [Concomitant]
  9. LISINOPRIL [Concomitant]
  10. LASIX [Concomitant]
  11. LEVAQUIN [Concomitant]
  12. PEPCID [Concomitant]
  13. MAALOX FAST BLOCKER [Concomitant]

REACTIONS (4)
  - OXYGEN SATURATION DECREASED [None]
  - PNEUMONIA ASPIRATION [None]
  - RESPIRATORY FAILURE [None]
  - TREATMENT NONCOMPLIANCE [None]
